FAERS Safety Report 20831637 (Version 1)
Quarter: 2022Q2

REPORT INFORMATION
  Report Type: Report from Study
  Country: US (occurrence: US)
  Receive Date: 20220516
  Receipt Date: 20220516
  Transmission Date: 20220721
  Serious: Yes (Other)
  Sender: FDA-Public Use
  Company Number: US-ROCHE-2102184

PATIENT
  Age: 64 Year
  Sex: Female

DRUGS (30)
  1. CLONAZEPAM [Suspect]
     Active Substance: CLONAZEPAM
     Indication: Multiple sclerosis
     Route: 065
     Dates: start: 20170529
  2. OCREVUS [Suspect]
     Active Substance: OCRELIZUMAB
     Indication: Multiple sclerosis
     Dosage: EVERY 6 MONTHS ;ONGOING: UNKNOWN, DATE OF TREATMENT = 6/4/2017, 5/7/2018, 11/8/2018, 4/4/2019 9/10/2
     Route: 042
     Dates: start: 20170604
  3. OCREVUS [Suspect]
     Active Substance: OCRELIZUMAB
     Indication: Relapsing multiple sclerosis
     Dosage: EVERY 6 MONTHS ;ONGOING: UNKNOWN, DATE OF TREATMENT = 6/4/2017, 5/7/2018, 11/8/2018, 4/4/2019 9/10/2
     Route: 042
     Dates: start: 20170604
  4. OCREVUS [Suspect]
     Active Substance: OCRELIZUMAB
     Indication: Multiple sclerosis
     Route: 041
     Dates: start: 2018
  5. OCREVUS [Suspect]
     Active Substance: OCRELIZUMAB
     Indication: Relapsing multiple sclerosis
     Route: 041
     Dates: start: 2018
  6. OCREVUS [Suspect]
     Active Substance: OCRELIZUMAB
     Indication: Multiple sclerosis
     Route: 065
     Dates: start: 20180507
  7. OCREVUS [Suspect]
     Active Substance: OCRELIZUMAB
     Indication: Relapsing multiple sclerosis
     Route: 065
     Dates: start: 20180507
  8. OCREVUS [Suspect]
     Active Substance: OCRELIZUMAB
     Indication: Multiple sclerosis
     Route: 042
  9. OCREVUS [Suspect]
     Active Substance: OCRELIZUMAB
     Indication: Relapsing multiple sclerosis
     Route: 042
  10. OCREVUS [Suspect]
     Active Substance: OCRELIZUMAB
     Indication: Multiple sclerosis
     Dosage: ONGOING: YES
     Route: 042
  11. OCREVUS [Suspect]
     Active Substance: OCRELIZUMAB
     Indication: Relapsing multiple sclerosis
     Dosage: ONGOING: YES
     Route: 042
  12. RITUXAN [Suspect]
     Active Substance: RITUXIMAB
     Indication: Systemic lupus erythematosus
     Dosage: ONGOING: NO
     Route: 042
  13. OXCARBAZEPINE [Concomitant]
     Active Substance: OXCARBAZEPINE
     Route: 065
  14. PROBIOTICS NOS [Concomitant]
     Active Substance: PROBIOTICS NOS
     Route: 065
  15. PROPRANOLOL HYDROCHLORIDE [Concomitant]
     Active Substance: PROPRANOLOL HYDROCHLORIDE
     Route: 065
  16. SERTRALINE HYDROCHLORIDE [Concomitant]
     Active Substance: SERTRALINE HYDROCHLORIDE
     Route: 065
  17. TRAMADOL HCL [Concomitant]
     Active Substance: TRAMADOL HYDROCHLORIDE
     Route: 065
  18. VALACYCLOVIR HYDROCHLORIDE [Concomitant]
     Active Substance: VALACYCLOVIR HYDROCHLORIDE
     Route: 065
  19. VENTOLIN HFA [Concomitant]
     Active Substance: ALBUTEROL SULFATE
     Route: 065
  20. ZOLPIDEM TARTRATE [Concomitant]
     Active Substance: ZOLPIDEM TARTRATE
     Route: 065
  21. ASPIRIN [Concomitant]
     Active Substance: ASPIRIN
     Route: 065
  22. BACLOFEN [Concomitant]
     Active Substance: BACLOFEN
     Route: 065
  23. CYCLOBENZAPRINE HYDROCHLORIDE [Concomitant]
     Active Substance: CYCLOBENZAPRINE HYDROCHLORIDE
     Route: 065
  24. ESTRADIOL [Concomitant]
     Active Substance: ESTRADIOL
     Route: 065
  25. INDERAL [Concomitant]
     Active Substance: PROPRANOLOL HYDROCHLORIDE
     Route: 065
  26. LANSOPRAZOLE [Concomitant]
     Active Substance: LANSOPRAZOLE
     Route: 065
  27. LEVOTHYROXINE SODIUM [Concomitant]
     Active Substance: LEVOTHYROXINE SODIUM
     Route: 065
  28. MAGNESIUM [Concomitant]
     Active Substance: MAGNESIUM
     Route: 065
  29. NORETHINDRONE ACETATE [Concomitant]
     Active Substance: NORETHINDRONE ACETATE
     Route: 065
  30. BENADRYL [Concomitant]
     Active Substance: DIPHENHYDRAMINE HYDROCHLORIDE
     Route: 065

REACTIONS (10)
  - Ankle fracture [Unknown]
  - Rash [Unknown]
  - Multiple sclerosis relapse [Unknown]
  - Malaise [Unknown]
  - Cognitive disorder [Unknown]
  - Fatigue [Not Recovered/Not Resolved]
  - Product use in unapproved indication [Unknown]
  - Gait disturbance [Not Recovered/Not Resolved]
  - Headache [Recovered/Resolved]
  - Insomnia [Not Recovered/Not Resolved]

NARRATIVE: CASE EVENT DATE: 20201214
